FAERS Safety Report 6793421-3 (Version None)
Quarter: 2010Q2

REPORT INFORMATION
  Report Type: 
  Country: None (occurrence: None)
  Receive Date: 20100624
  Receipt Date: 20100223
  Transmission Date: 20101027
  Serious: Yes (Death)
  Sender: FDA-Public Use
  Company Number: US-MYLANLABS-2010S1003120

PATIENT
  Age: 66 Year
  Sex: Male

DRUGS (5)
  1. CLOZAPINE [Suspect]
     Indication: SCHIZOPHRENIA
     Route: 048
     Dates: end: 20091228
  2. CLOZAPINE [Suspect]
     Route: 048
     Dates: end: 20091228
  3. COGENTIN [Concomitant]
  4. HALDOL [Concomitant]
  5. PAXIL [Concomitant]

REACTIONS (1)
  - DEATH [None]
